FAERS Safety Report 17479175 (Version 2)
Quarter: 2020Q1

REPORT INFORMATION
  Report Type: Report from Study
  Country: CA (occurrence: CA)
  Receive Date: 20200228
  Receipt Date: 20200309
  Transmission Date: 20200409
  Serious: Yes (Other)
  Sender: FDA-Public Use
  Company Number: CA-JNJFOC-20181115064

PATIENT
  Age: 20 Year
  Sex: Female
  Weight: 41 kg

DRUGS (6)
  1. STELARA [Suspect]
     Active Substance: USTEKINUMAB
     Indication: CROHN^S DISEASE
     Route: 058
     Dates: start: 20160617
  2. STELARA [Suspect]
     Active Substance: USTEKINUMAB
     Indication: RHEUMATOID ARTHRITIS
     Route: 058
  3. STELARA [Suspect]
     Active Substance: USTEKINUMAB
     Indication: PSORIATIC ARTHROPATHY
  4. CORTISONE [Suspect]
     Active Substance: CORTISONE
     Indication: PRODUCT USED FOR UNKNOWN INDICATION
     Route: 065
  5. CELECOXIB. [Suspect]
     Active Substance: CELECOXIB
     Indication: ABDOMINAL PAIN UPPER
     Route: 065
     Dates: start: 201902
  6. METHOTREXATE. [Suspect]
     Active Substance: METHOTREXATE
     Indication: IMMUNOSUPPRESSION
     Route: 048

REACTIONS (12)
  - Nephrolithiasis [Recovered/Resolved]
  - Infection [Recovered/Resolved]
  - Injection site erythema [Recovered/Resolved]
  - Injection site oedema [Recovered/Resolved]
  - Product dose omission [Unknown]
  - Crohn^s disease [Recovered/Resolved]
  - Arthralgia [Recovered/Resolved]
  - Migraine [Recovered/Resolved]
  - Joint dislocation [Recovered/Resolved]
  - Chondropathy [Recovered/Resolved]
  - Jaw fracture [Recovered/Resolved]
  - Gastrooesophageal reflux disease [Recovered/Resolved]

NARRATIVE: CASE EVENT DATE: 20180925
